FAERS Safety Report 9280755 (Version 1)
Quarter: 2013Q2

REPORT INFORMATION
  Report Type: Report from Study
  Country: CA (occurrence: CA)
  Receive Date: 20130509
  Receipt Date: 20130509
  Transmission Date: 20140414
  Serious: Yes (Hospitalization)
  Sender: FDA-Public Use
  Company Number: CA-ROCHE-1221508

PATIENT
  Age: 69 Year
  Sex: Female
  Weight: 79.4 kg

DRUGS (10)
  1. FILGRASTIM [Suspect]
     Indication: MANTLE CELL LYMPHOMA
     Dosage: UNK X7
     Route: 058
     Dates: start: 20130221, end: 20130227
  2. FILGRASTIM [Suspect]
     Route: 058
     Dates: start: 20130314, end: 20130320
  3. FILGRASTIM [Suspect]
     Route: 058
     Dates: start: 20130404, end: 20130410
  4. RITUXIMAB [Suspect]
     Indication: PRODUCT USED FOR UNKNOWN INDICATION
     Route: 065
     Dates: start: 20130128
  5. CYCLOPHOSPHAMIDE [Suspect]
     Indication: PRODUCT USED FOR UNKNOWN INDICATION
     Route: 065
     Dates: start: 20130128
  6. DOXORUBICIN [Suspect]
     Indication: PRODUCT USED FOR UNKNOWN INDICATION
     Route: 065
     Dates: start: 20130128
  7. VINCRISTINE [Suspect]
     Indication: PRODUCT USED FOR UNKNOWN INDICATION
     Route: 065
     Dates: start: 20130128
  8. PREDNISONE [Suspect]
     Indication: PRODUCT USED FOR UNKNOWN INDICATION
     Route: 065
     Dates: start: 20130128
  9. ZYLOPRIM [Concomitant]
     Route: 065
  10. SERTRALINE [Concomitant]

REACTIONS (8)
  - Pneumonia [Recovered/Resolved]
  - Pulmonary embolism [Recovering/Resolving]
  - Back pain [Not Recovered/Not Resolved]
  - Bone pain [Not Recovered/Not Resolved]
  - Furuncle [Not Recovered/Not Resolved]
  - Subcutaneous abscess [Recovered/Resolved]
  - Syncope [Recovered/Resolved]
  - Constipation [Recovering/Resolving]
